FAERS Safety Report 18001508 (Version 2)
Quarter: 2020Q3

REPORT INFORMATION
  Report Type: Spontaneous
  Country: GB (occurrence: GB)
  Receive Date: 20200709
  Receipt Date: 20200917
  Transmission Date: 20201103
  Serious: Yes (Death, Life-Threatening, Other)
  Sender: FDA-Public Use
  Company Number: NVSC2020GB191386

PATIENT
  Age: 93 Year
  Sex: Female
  Weight: 45 kg

DRUGS (16)
  1. BUMETANIDE. [Suspect]
     Active Substance: BUMETANIDE
     Dosage: 5 MG, PRN
     Route: 048
  2. MACROGOL [Suspect]
     Active Substance: POLYETHYLENE GLYCOLS
     Indication: PRODUCT USED FOR UNKNOWN INDICATION
     Dosage: UNK
     Route: 065
  3. BUMETANIDE. [Suspect]
     Active Substance: BUMETANIDE
     Dosage: 3 MG, PRN
     Route: 048
  4. ORAMORPH [Concomitant]
     Active Substance: MORPHINE SULFATE
     Indication: PRODUCT USED FOR UNKNOWN INDICATION
     Dosage: UNK
     Route: 065
  5. LEVOTHYROXINE SODIUM. [Concomitant]
     Active Substance: LEVOTHYROXINE SODIUM
     Indication: PRODUCT USED FOR UNKNOWN INDICATION
     Dosage: UNK
     Route: 065
  6. LANSOPRAZOLE. [Suspect]
     Active Substance: LANSOPRAZOLE
     Indication: GASTROOESOPHAGEAL REFLUX DISEASE
     Dosage: 15 MG
     Route: 065
  7. BUMETANIDE. [Suspect]
     Active Substance: BUMETANIDE
     Indication: GASTROOESOPHAGEAL REFLUX DISEASE
     Dosage: 4 MG, PRN (INCREASED)
     Route: 048
  8. FOSTAIR [Concomitant]
     Active Substance: BECLOMETHASONE\FORMOTEROL
     Indication: PRODUCT USED FOR UNKNOWN INDICATION
     Dosage: UNK
     Route: 065
  9. BUMETANIDE. [Suspect]
     Active Substance: BUMETANIDE
     Indication: RALES
     Dosage: UNK UNK, PRN
     Route: 048
  10. BUMETANIDE. [Suspect]
     Active Substance: BUMETANIDE
     Dosage: 4 MG, PRN
     Route: 048
  11. CETIRIZINE [Concomitant]
     Active Substance: CETIRIZINE HYDROCHLORIDE
     Indication: PRODUCT USED FOR UNKNOWN INDICATION
     Dosage: UNK
     Route: 065
  12. ATORVASTATIN [Concomitant]
     Active Substance: ATORVASTATIN
     Indication: PRODUCT USED FOR UNKNOWN INDICATION
     Dosage: UNK
     Route: 065
  13. BUMETANIDE. [Suspect]
     Active Substance: BUMETANIDE
     Dosage: 5 MG (INCREASED BUMETANIDE TO 4MG WENT DOWN TO 3MG AND THEN INCREASED TO 4MG AND THEN TO 5MG)
     Route: 048
     Dates: end: 20200601
  14. LAXIDO [Suspect]
     Active Substance: POLYETHYLENE GLYCOL 3350\POTASSIUM CHLORIDE\SODIUM BICARBONATE\SODIUM CHLORIDE
     Indication: CONSTIPATION
     Dosage: 13.13 MG (5 MY BUMETANIDE LAXIDO OR COSMOLOGY GEL SATCHET AS REQUIRED)
     Route: 048
     Dates: start: 20200117, end: 20200601
  15. CLOPIDOGREL [Concomitant]
     Active Substance: CLOPIDOGREL BISULFATE
     Indication: PRODUCT USED FOR UNKNOWN INDICATION
     Dosage: UNK
     Route: 065
  16. VENTOLIN [Concomitant]
     Active Substance: ALBUTEROL SULFATE
     Indication: PRODUCT USED FOR UNKNOWN INDICATION
     Dosage: UNK
     Route: 065

REACTIONS (9)
  - Death [Fatal]
  - Atrial fibrillation [Unknown]
  - Confusional state [Unknown]
  - Renal impairment [Unknown]
  - Hypernatraemia [Unknown]
  - Pruritus [Unknown]
  - Hypokalaemia [Unknown]
  - Malaise [Unknown]
  - Rash [Unknown]

NARRATIVE: CASE EVENT DATE: 20200529
